FAERS Safety Report 7755602-1 (Version None)
Quarter: 2011Q3

REPORT INFORMATION
  Report Type: 
  Country: None (occurrence: None)
  Receive Date: 20110916
  Receipt Date: 20110906
  Transmission Date: 20111222
  Serious: Yes (Hospitalization)
  Sender: FDA-Public Use
  Company Number: US-JNJFOC-20110102528

PATIENT
  Sex: Male
  Weight: 44.5 kg

DRUGS (6)
  1. TYLENOL-500 [Suspect]
     Indication: PYREXIA
     Route: 048
     Dates: start: 20090315
  2. TYLENOL-500 [Suspect]
     Indication: RESPIRATORY DISORDER
     Route: 048
     Dates: start: 20090315
  3. NIMESULIDA [Suspect]
     Indication: COUGH
  4. VICODIN [Concomitant]
     Indication: PAIN
  5. ACYCLOVIR [Concomitant]
     Indication: STOMATITIS
  6. NIMESULIDA [Suspect]
     Indication: PYREXIA

REACTIONS (1)
  - STEVENS-JOHNSON SYNDROME [None]
